FAERS Safety Report 12489733 (Version 6)
Quarter: 2016Q4

REPORT INFORMATION
  Report Type: Spontaneous
  Country: US (occurrence: US)
  Receive Date: 20160622
  Receipt Date: 20161114
  Transmission Date: 20170207
  Serious: No
  Sender: FDA-Public Use
  Company Number: US-GLAXOSMITHKLINE-US2016GSK088569

PATIENT
  Age: 25 Year
  Sex: Female

DRUGS (8)
  1. FLOLAN DILUENT SOLUTION FOR INJECTION [Suspect]
     Active Substance: GLYCINE\MANNITOL\SODIUM CHLORIDE
     Indication: PULMONARY ARTERIAL HYPERTENSION
     Dosage: UNK, CO
     Dates: start: 20160614
  2. CHLORAPREP [Suspect]
     Active Substance: CHLORHEXIDINE GLUCONATE\ISOPROPYL ALCOHOL
  3. FLOLAN DILUENT SOLUTION FOR INJECTION [Suspect]
     Active Substance: GLYCINE\MANNITOL\SODIUM CHLORIDE
     Dosage: UNK
  4. FLOLAN [Suspect]
     Active Substance: EPOPROSTENOL SODIUM
     Dosage: 7 NG/KG/MIN (CONCENTRATION 10,000 NG/ML, PUMP RATE 47 ML/DAY, VIAL STRENGTH 0.5 MG), CO
     Route: 042
  5. COUMADIN [Concomitant]
     Active Substance: WARFARIN SODIUM
  6. FLOLAN [Suspect]
     Active Substance: EPOPROSTENOL SODIUM
     Indication: PULMONARY ARTERIAL HYPERTENSION
     Dosage: 5 NG/KG/MIN, CO
     Route: 042
     Dates: start: 20160614
  7. FLOLAN [Suspect]
     Active Substance: EPOPROSTENOL SODIUM
     Dosage: 14 NG/KG/MIN, CONTINOUSLY
     Route: 042
  8. FLOLAN [Suspect]
     Active Substance: EPOPROSTENOL SODIUM
     Dosage: 6 NG/KG/MIN, CO
     Route: 042

REACTIONS (16)
  - Pain in extremity [Unknown]
  - Dyspnoea [Recovered/Resolved]
  - Catheter site vesicles [Unknown]
  - Catheter site inflammation [Unknown]
  - Catheter site discharge [Unknown]
  - Device issue [Unknown]
  - Pain in jaw [Unknown]
  - Muscle spasms [Unknown]
  - Wound secretion [Unknown]
  - Skin reaction [Unknown]
  - Skin irritation [Unknown]
  - Rash [Unknown]
  - Catheter site rash [Unknown]
  - Catheter site erosion [Unknown]
  - Headache [Unknown]
  - Catheter site erythema [Unknown]

NARRATIVE: CASE EVENT DATE: 2016
